FAERS Safety Report 6547755-8 (Version None)
Quarter: 2010Q1

REPORT INFORMATION
  Report Type: 
  Country: None (occurrence: None)
  Receive Date: 20100124
  Receipt Date: 20091005
  Transmission Date: 20100710
  Serious: No
  Sender: FDA-Public Use
  Company Number: US-ALEXION-A200900798

PATIENT
  Sex: Male

DRUGS (12)
  1. SOLIRIS [Suspect]
     Indication: PAROXYSMAL NOCTURNAL HAEMOGLOBINURIA
     Dosage: 600 MG, SINGLE
     Dates: start: 20090126, end: 20090126
  2. SOLIRIS [Suspect]
     Dosage: 600 MG, QW
     Dates: start: 20090201, end: 20090301
  3. SOLIRIS [Suspect]
     Dosage: 900 MG, Q 2WK
     Dates: start: 20090301
  4. COLACE [Concomitant]
     Dosage: UNK
     Route: 048
     Dates: start: 20090701
  5. PRILOSEC [Concomitant]
     Dosage: 20 MG, QD
     Route: 048
     Dates: start: 20090701
  6. FOLIC ACID [Concomitant]
     Dosage: 1 MG, QD
     Route: 048
  7. AMBIEN CR [Concomitant]
     Dosage: 10 MG, QD (QHS)
     Route: 048
  8. IRON [Concomitant]
     Dosage: 1 MG, QD
     Route: 048
  9. ALTACE [Concomitant]
     Dosage: 2.5 MG, QD
     Route: 048
  10. LIPITOR [Concomitant]
     Dosage: 40 MG, QD
     Route: 048
  11. TOPROL-XL [Concomitant]
     Dosage: 50 MG, QD
     Route: 048
  12. LASIX [Concomitant]
     Dosage: 20 MG, BID
     Route: 048

REACTIONS (3)
  - DRY SKIN [None]
  - ERYTHEMA [None]
  - HEADACHE [None]
